FAERS Safety Report 5872010-9 (Version None)
Quarter: 2008Q3

REPORT INFORMATION
  Report Type: 
  Country: None (occurrence: None)
  Receive Date: 20080904
  Receipt Date: 20080904
  Transmission Date: 20090109
  Serious: Yes (Hospitalization)
  Sender: FDA-Public Use
  Company Number: None

PATIENT
  Age: 89 Year
  Sex: Male

DRUGS (1)
  1. ASPIRIN [Suspect]
     Indication: CAROTID ARTERY STENOSIS
     Dosage: 81 MG EVERY DAY PO
     Route: 048
     Dates: start: 20080627, end: 20080825

REACTIONS (1)
  - GASTRIC HAEMORRHAGE [None]
